FAERS Safety Report 8519308-3 (Version None)
Quarter: 2012Q3

REPORT INFORMATION
  Report Type: 
  Country: None (occurrence: None)
  Receive Date: 20120718
  Receipt Date: 20090908
  Transmission Date: 20120928
  Serious: Yes (Other)
  Sender: FDA-Public Use
  Company Number: TR-ROCHE-1088983

PATIENT
  Sex: Female

DRUGS (1)
  1. XOLAIR [Suspect]
     Indication: ASTHMA
     Route: 058
     Dates: start: 20080709, end: 20090710

REACTIONS (5)
  - ASTHMA [None]
  - PRODUCTIVE COUGH [None]
  - FEELING COLD [None]
  - MALAISE [None]
  - DYSPNOEA [None]
